FAERS Safety Report 9905093 (Version 1)
Quarter: 2014Q1

REPORT INFORMATION
  Report Type: Spontaneous
  Country: US (occurrence: None)
  Receive Date: 20140212
  Receipt Date: 20140212
  Transmission Date: 20141002
  Serious: Yes (Disabling, Other)
  Sender: FDA-Public Use
  Company Number: None

PATIENT
  Sex: Female
  Weight: 56.7 kg

DRUGS (8)
  1. ELIDEL [Suspect]
     Indication: ECZEMA
     Dates: start: 19970501, end: 20140115
  2. ELIDEL [Suspect]
     Indication: DERMATITIS ATOPIC
     Dates: start: 19970501, end: 20140115
  3. ELIDEL [Suspect]
     Indication: ECZEMA
     Dates: start: 19970501, end: 20140115
  4. ELIDEL [Suspect]
     Indication: DEPENDENCE
     Dates: start: 19970501, end: 20140115
  5. HYDROCORTISONE VALERATE [Suspect]
     Dates: start: 19970501, end: 20140115
  6. PROTOPIC [Suspect]
     Dates: start: 19970501, end: 20140115
  7. HYDROXYZINE HCL [Concomitant]
  8. RANITIDINE [Concomitant]

REACTIONS (15)
  - Eczema [None]
  - Drug withdrawal syndrome [None]
  - Rash generalised [None]
  - Pruritus [None]
  - Burning sensation [None]
  - Wound [None]
  - Staphylococcal skin infection [None]
  - Quality of life decreased [None]
  - Depression [None]
  - Suicidal ideation [None]
  - Insomnia [None]
  - Chills [None]
  - Tremor [None]
  - Paraesthesia [None]
  - Pain [None]
